FAERS Safety Report 16235309 (Version 2)
Quarter: 2019Q3

REPORT INFORMATION
  Report Type: Spontaneous
  Country: US (occurrence: US)
  Receive Date: 20190424
  Receipt Date: 20190723
  Transmission Date: 20191004
  Serious: Yes (Other)
  Sender: FDA-Public Use
  Company Number: US-ASTRAZENECA-2019SE11332

PATIENT
  Sex: Male
  Weight: 117.9 kg

DRUGS (14)
  1. REMINYL [Concomitant]
     Active Substance: GALANTAMINE
  2. PRILOSEC [Suspect]
     Active Substance: OMEPRAZOLE MAGNESIUM
     Dosage: GENERIC
     Route: 065
  3. PREVACID [Suspect]
     Active Substance: LANSOPRAZOLE
     Route: 065
  4. AMBIEN [Concomitant]
     Active Substance: ZOLPIDEM TARTRATE
  5. PLENDIL [Concomitant]
     Active Substance: FELODIPINE
  6. DOXEPIN [Concomitant]
     Active Substance: DOXEPIN
  7. LUNESTA [Concomitant]
     Active Substance: ESZOPICLONE
  8. TRAMADOL. [Concomitant]
     Active Substance: TRAMADOL
  9. ZONISAMIDE. [Concomitant]
     Active Substance: ZONISAMIDE
  10. NEXIUM [Suspect]
     Active Substance: ESOMEPRAZOLE MAGNESIUM
     Route: 048
  11. MEPROBAMATE. [Concomitant]
     Active Substance: MEPROBAMATE
  12. CLONIDINE. [Concomitant]
     Active Substance: CLONIDINE
  13. PRILOSEC [Suspect]
     Active Substance: OMEPRAZOLE MAGNESIUM
     Route: 048
  14. METFORMIN [Concomitant]
     Active Substance: METFORMIN HYDROCHLORIDE

REACTIONS (3)
  - Chronic kidney disease [Not Recovered/Not Resolved]
  - Renal failure [Unknown]
  - Rebound acid hypersecretion [Unknown]
